FAERS Safety Report 4299912-1 (Version None)
Quarter: 2004Q1

REPORT INFORMATION
  Report Type: 
  Country: None (occurrence: None)
  Receive Date: 20040218
  Receipt Date: 20040209
  Transmission Date: 20041129
  Serious: Yes (Other)
  Sender: FDA-Public Use
  Company Number: GB-JNJFOC-20040104111

PATIENT
  Age: 54 Year
  Sex: Female

DRUGS (7)
  1. DURAGESIC [Suspect]
     Indication: PAIN
     Dosage: 50 UG/HR, TRANSDERMAL
     Route: 062
  2. VERAPAMIL HCL [Concomitant]
  3. DIAZEPAM [Concomitant]
  4. DICLOFENAC [Concomitant]
  5. PREMARIN [Concomitant]
  6. RANITIDINE [Concomitant]
  7. DICONAL [Concomitant]

REACTIONS (3)
  - DRUG WITHDRAWAL SYNDROME [None]
  - SUICIDAL IDEATION [None]
  - SYNCOPE [None]
